FAERS Safety Report 6840391-5 (Version None)
Quarter: 2010Q3

REPORT INFORMATION
  Report Type: 
  Country: None (occurrence: None)
  Receive Date: 20100714
  Receipt Date: 20100712
  Transmission Date: 20110219
  Serious: Yes (Other)
  Sender: FDA-Public Use
  Company Number: BG-BRISTOL-MYERS SQUIBB COMPANY-15186711

PATIENT
  Age: 26 Year
  Sex: Male

DRUGS (2)
  1. ABILIFY [Suspect]
     Indication: SCHIZOPHRENIA
     Dosage: INCREASED TO 30 MG/DAY (FOR 2 WEEKS)THEN REDUCED TO 15MG/DAY
     Route: 048
     Dates: start: 20100601
  2. INVEGA [Concomitant]
     Indication: SCHIZOPHRENIA
     Dates: end: 20100601

REACTIONS (1)
  - PSYCHOTIC DISORDER [None]
